FAERS Safety Report 4339462-7 (Version None)
Quarter: 2004Q2

REPORT INFORMATION
  Report Type: 
  Country: None (occurrence: None)
  Receive Date: 20040412
  Receipt Date: 20031027
  Transmission Date: 20050107
  Serious: Yes (Death)
  Sender: FDA-Public Use
  Company Number: M2004.0253

PATIENT
  Age: 30 Year
  Sex: Male

DRUGS (2)
  1. DICLOFENAC SODIUM [Suspect]
     Indication: ANALGESIC EFFECT
  2. OXYCONTIN (OXYCODONE) 40 MG BID [Concomitant]

REACTIONS (3)
  - CONVULSION [None]
  - DRUG TOXICITY [None]
  - POST PROCEDURAL COMPLICATION [None]
